FAERS Safety Report 23720507 (Version 1)
Quarter: 2024Q2

REPORT INFORMATION
  Report Type: Spontaneous
  Country: ZA (occurrence: None)
  Receive Date: 20240408
  Receipt Date: 20240408
  Transmission Date: 20240716
  Serious: Yes (Hospitalization)
  Sender: FDA-Public Use
  Company Number: 2024A082802

PATIENT
  Age: 51 Year
  Sex: Male

DRUGS (8)
  1. DAPAGLIFLOZIN PROPANEDIOL [Suspect]
     Active Substance: DAPAGLIFLOZIN PROPANEDIOL
     Route: 048
  2. PANTOCID [Concomitant]
  3. MACRODANTIN [Concomitant]
     Active Substance: NITROFURANTOIN
  4. ISMO [Concomitant]
     Active Substance: ISOSORBIDE MONONITRATE
  5. BUDESONIDE\FORMOTEROL [Concomitant]
     Active Substance: BUDESONIDE\FORMOTEROL
     Dosage: UNKNOWN UNKNOWN
  6. ALLOPURINOL [Concomitant]
     Active Substance: ALLOPURINOL
  7. ASPIRIN [Concomitant]
     Active Substance: ASPIRIN
  8. METFORMIN HYDROCHLORIDE [Concomitant]
     Active Substance: METFORMIN HYDROCHLORIDE

REACTIONS (1)
  - Pneumonia [Unknown]
